FAERS Safety Report 4748569-1 (Version None)
Quarter: 2005Q3

REPORT INFORMATION
  Report Type: 
  Country: None (occurrence: None)
  Receive Date: 20050818
  Receipt Date: 20050818
  Transmission Date: 20060218
  Serious: Yes (Other)
  Sender: FDA-Public Use
  Company Number: None

PATIENT
  Age: 48 Year
  Sex: Male
  Weight: 97.5234 kg

DRUGS (1)
  1. CIPRO XR [Suspect]
     Indication: URINARY TRACT INFECTION
     Dosage: 1   DAILY   ORAL
     Route: 048
     Dates: start: 20030101, end: 20050101

REACTIONS (2)
  - ASTHENIA [None]
  - PHARMACEUTICAL PRODUCT COMPLAINT [None]
